FAERS Safety Report 9648593 (Version 1)
Quarter: 2013Q4

REPORT INFORMATION
  Report Type: Spontaneous
  Country: US (occurrence: None)
  Receive Date: 20131025
  Receipt Date: 20131025
  Transmission Date: 20140711
  Serious: Yes (Life-Threatening, Hospitalization, Disabling)
  Sender: FDA-Public Use
  Company Number: None

PATIENT
  Age: 73 Year
  Sex: Male
  Weight: 97.52 kg

DRUGS (2)
  1. XARELTO 20 MG JANSSEN PHARM [Suspect]
     Indication: ATRIAL FIBRILLATION
     Route: 048
  2. XARELTO 20 MG JANSSEN PHARM [Suspect]
     Indication: HEART RATE DECREASED
     Route: 048

REACTIONS (2)
  - Aortic aneurysm rupture [None]
  - Renal failure [None]
